FAERS Safety Report 6490898-8 (Version None)
Quarter: 2009Q4

REPORT INFORMATION
  Report Type: 
  Country: None (occurrence: None)
  Receive Date: 20091211
  Receipt Date: 20091203
  Transmission Date: 20100525
  Serious: Yes (Other)
  Sender: FDA-Public Use
  Company Number: TH-WATSON-2009-10390

PATIENT
  Age: 43 Year
  Sex: Male

DRUGS (1)
  1. PREDNISOLONE [Suspect]
     Indication: PSORIASIS
     Dosage: 20 MG, DAILY

REACTIONS (2)
  - CHORIORETINOPATHY [None]
  - RETINAL DETACHMENT [None]
